FAERS Safety Report 22161659 (Version 1)
Quarter: 2023Q1

REPORT INFORMATION
  Report Type: Spontaneous
  Country: US (occurrence: US)
  Receive Date: 20230331
  Receipt Date: 20230331
  Transmission Date: 20230417
  Serious: No
  Sender: FDA-Public Use
  Company Number: US-IBSA PHARMA INC.-2022IBS000425

PATIENT

DRUGS (2)
  1. DICLOFENAC [Suspect]
     Active Substance: DICLOFENAC
     Indication: COVID-19 treatment
     Dosage: UNK
     Dates: start: 20221120
  2. TYLENOL [Suspect]
     Active Substance: ACETAMINOPHEN
     Indication: COVID-19 treatment
     Dosage: UNK
     Dates: start: 20221120

REACTIONS (1)
  - Body temperature increased [Recovering/Resolving]

NARRATIVE: CASE EVENT DATE: 20221129
